FAERS Safety Report 23408474 (Version 2)
Quarter: 2024Q1

REPORT INFORMATION
  Report Type: Report from Study
  Country: US (occurrence: US)
  Receive Date: 20240117
  Receipt Date: 20240313
  Transmission Date: 20240410
  Serious: Yes (Other)
  Sender: FDA-Public Use
  Company Number: US-TEVA-VS-3134615

PATIENT

DRUGS (4)
  1. MYCOPHENOLATE MOFETIL [Suspect]
     Active Substance: MYCOPHENOLATE MOFETIL
     Indication: Prophylaxis against graft versus host disease
     Route: 065
  2. CYCLOPHOSPHAMIDE [Suspect]
     Active Substance: CYCLOPHOSPHAMIDE
     Indication: Bone marrow conditioning regimen
     Dosage: DOSE POST TRANSPLANT: IV CYCLOPHOPHAMIDE, AT 50 MG/KG/DAY ON (DAYS+3 AND+4)
     Route: 042
  3. CYCLOPHOSPHAMIDE [Suspect]
     Active Substance: CYCLOPHOSPHAMIDE
     Indication: Bone marrow conditioning regimen
     Dosage: DOSE: IV INFUSION CYCLOPHOSPHAMIDE 1 TO 2 HOUR AT 14.5 MG/KG DAILY FOR TWO DAYS (DAY-6 TO DAY-5) ...
     Route: 041
  4. FLUDARABINE [Suspect]
     Active Substance: FLUDARABINE PHOSPHATE
     Indication: Bone marrow conditioning regimen
     Dosage: DOSAGE: 30MG/M*2/DAY FOR FIVE DAYS (DAY -6 TO DAY -2) FOR A TOTAL DOSE OF 150MG/M*2
     Route: 042

REACTIONS (1)
  - Myeloid leukaemia [Unknown]
